FAERS Safety Report 13838608 (Version 1)
Quarter: 2017Q3

REPORT INFORMATION
  Report Type: Spontaneous
  Country: US (occurrence: US)
  Receive Date: 20170807
  Receipt Date: 20170807
  Transmission Date: 20171127
  Serious: No
  Sender: FDA-Public Use
  Company Number: US-BAYER-2017-149494

PATIENT
  Sex: Female

DRUGS (1)
  1. MIRALAX [Suspect]
     Active Substance: POLYETHYLENE GLYCOL 3350
     Indication: GASTROINTESTINAL DISORDER
     Dosage: LESS THAN 17G DAILY
     Route: 048

REACTIONS (4)
  - Underdose [Unknown]
  - Circumstance or information capable of leading to medication error [Unknown]
  - Incorrect drug administration duration [Unknown]
  - Abdominal pain [Unknown]
